FAERS Safety Report 6447809-0 (Version None)
Quarter: 2009Q4

REPORT INFORMATION
  Report Type: 
  Country: None (occurrence: None)
  Receive Date: 20091120
  Receipt Date: 20090811
  Transmission Date: 20100525
  Serious: No
  Sender: FDA-Public Use
  Company Number: A0801646A

PATIENT
  Age: 52 Year
  Sex: Female

DRUGS (5)
  1. VERAMYST [Suspect]
     Dosage: 1SPR TWICE PER DAY
     Route: 045
     Dates: start: 20090809, end: 20090810
  2. VITAMINS [Concomitant]
  3. PHYTOSTEROL [Concomitant]
  4. BIOTIN [Concomitant]
  5. ESTROVEN [Concomitant]

REACTIONS (1)
  - PALPITATIONS [None]
